FAERS Safety Report 24644641 (Version 2)
Quarter: 2025Q3

REPORT INFORMATION
  Report Type: Spontaneous
  Country: EU (occurrence: EU)
  Receive Date: 20241121
  Receipt Date: 20250802
  Transmission Date: 20251020
  Serious: Yes (Hospitalization)
  Sender: ALEXION PHARMACEUTICALS
  Company Number: None

PATIENT
  Age: 25 Day
  Sex: Male
  Weight: 3.53 kg

DRUGS (1)
  1. BEYFORTUS [Suspect]
     Active Substance: NIRSEVIMAB-ALIP
     Indication: Antiviral prophylaxis
     Dosage: UNK, QD
     Route: 065
     Dates: start: 20240925, end: 20240925

REACTIONS (1)
  - Acute haemorrhagic oedema of infancy [Recovering/Resolving]

NARRATIVE: CASE EVENT DATE: 20240926
